FAERS Safety Report 14206187 (Version 1)
Quarter: 2017Q4

REPORT INFORMATION
  Report Type: Spontaneous
  Country: CN (occurrence: CN)
  Receive Date: 20171120
  Receipt Date: 20171120
  Transmission Date: 20180321
  Serious: Yes (Hospitalization)
  Sender: FDA-Public Use
  Company Number: CN-SA-2017SA216851

PATIENT
  Age: 82 Year
  Sex: Female
  Weight: 45 kg

DRUGS (15)
  1. IRBESARTAN. [Suspect]
     Active Substance: IRBESARTAN
     Route: 048
     Dates: start: 20160915, end: 20160920
  2. ATORVASTATIN CALCIUM. [Concomitant]
     Active Substance: ATORVASTATIN CALCIUM
     Route: 065
  3. ATORVASTATIN CALCIUM. [Concomitant]
     Active Substance: ATORVASTATIN CALCIUM
     Route: 048
     Dates: start: 20160914, end: 20160928
  4. DIGOXIN. [Interacting]
     Active Substance: DIGOXIN
     Route: 048
  5. WARFARIN SODIUM. [Concomitant]
     Active Substance: WARFARIN SODIUM
     Route: 065
  6. WARFARIN SODIUM. [Concomitant]
     Active Substance: WARFARIN SODIUM
     Route: 048
     Dates: start: 20160914, end: 20160921
  7. DILTIAZEM. [Interacting]
     Active Substance: DILTIAZEM
     Route: 065
  8. SALBUTAMOL SULFATE [Suspect]
     Active Substance: ALBUTEROL SULFATE
     Indication: HEART RATE ABNORMAL
     Route: 065
     Dates: start: 20160921, end: 20160928
  9. FUROSEMIDE. [Interacting]
     Active Substance: FUROSEMIDE
     Route: 048
     Dates: start: 20160921, end: 20160928
  10. TELMISARTAN. [Concomitant]
     Active Substance: TELMISARTAN
     Indication: HYPERTENSION
     Route: 065
  11. SPIRONOLACTONE. [Interacting]
     Active Substance: SPIRONOLACTONE
     Route: 065
  12. AMINOPHYLLINE. [Suspect]
     Active Substance: AMINOPHYLLINE
     Route: 048
     Dates: start: 20160921, end: 20160922
  13. WARFARIN SODIUM. [Concomitant]
     Active Substance: WARFARIN SODIUM
     Route: 048
     Dates: start: 20160922, end: 20160928
  14. FUROSEMIDE. [Interacting]
     Active Substance: FUROSEMIDE
     Route: 065
  15. SPIRONOLACTONE. [Interacting]
     Active Substance: SPIRONOLACTONE
     Route: 048

REACTIONS (19)
  - Toxicity to various agents [Recovering/Resolving]
  - Dehydration [Recovering/Resolving]
  - Acute kidney injury [Recovering/Resolving]
  - Dizziness [Recovering/Resolving]
  - Nausea [Recovering/Resolving]
  - Chest discomfort [Recovering/Resolving]
  - Oedema peripheral [Recovering/Resolving]
  - Blood potassium increased [Unknown]
  - Sinus bradycardia [Recovering/Resolving]
  - Atrial fibrillation [Recovering/Resolving]
  - Diarrhoea [Recovering/Resolving]
  - Abdominal pain [Recovering/Resolving]
  - Condition aggravated [Recovering/Resolving]
  - Vomiting [Recovering/Resolving]
  - Asthenia [Recovering/Resolving]
  - Drug interaction [Unknown]
  - Pruritus [Unknown]
  - Palpitations [Recovering/Resolving]
  - Anaphylactic reaction [Unknown]
